FAERS Safety Report 6137928-0 (Version None)
Quarter: 2009Q1

REPORT INFORMATION
  Report Type: 
  Country: None (occurrence: None)
  Receive Date: 20090331
  Receipt Date: 20090319
  Transmission Date: 20090719
  Serious: Yes (Other)
  Sender: FDA-Public Use
  Company Number: GR-PFIZER INC-2009185208

PATIENT

DRUGS (1)
  1. SOLU-CORTEF [Suspect]
     Indication: CHRONIC OBSTRUCTIVE PULMONARY DISEASE
     Dosage: FREQUENCY: PRN,
     Route: 030
     Dates: start: 20090319, end: 20090319

REACTIONS (1)
  - PARAESTHESIA [None]
